FAERS Safety Report 6478032-1 (Version None)
Quarter: 2009Q4

REPORT INFORMATION
  Report Type: 
  Country: None (occurrence: None)
  Receive Date: 20091207
  Receipt Date: 20091204
  Transmission Date: 20100525
  Serious: Yes (Hospitalization)
  Sender: FDA-Public Use
  Company Number: Z0002153A

PATIENT
  Sex: Male
  Weight: 53.1 kg

DRUGS (2)
  1. LAPATINIB [Suspect]
     Indication: GASTRIC CANCER
     Dosage: 1500MG PER DAY
     Route: 048
     Dates: start: 20091020
  2. PACLITAXEL [Suspect]
     Indication: GASTRIC CANCER
     Dosage: 80MGM2 CYCLIC
     Route: 042
     Dates: start: 20091020

REACTIONS (3)
  - DECREASED APPETITE [None]
  - LEUKOPENIA [None]
  - NEUTROPENIA [None]
